FAERS Safety Report 11577550 (Version 5)
Quarter: 2017Q4

REPORT INFORMATION
  Report Type: Report from Study
  Country: None (occurrence: US)
  Receive Date: 20150930
  Receipt Date: 20171122
  Transmission Date: 20180320
  Serious: Yes (Hospitalization, Other)
  Sender: FDA-Public Use
  Company Number: US-ABBVIE-15K-163-1470628-00

PATIENT
  Sex: Female
  Weight: 113.5 kg

DRUGS (3)
  1. METHOTREXATE. [Concomitant]
     Active Substance: METHOTREXATE
     Indication: PRODUCT USED FOR UNKNOWN INDICATION
  2. HUMIRA [Suspect]
     Active Substance: ADALIMUMAB
     Indication: RHEUMATOID ARTHRITIS
     Route: 058
     Dates: start: 2006, end: 201708
  3. HUMIRA [Suspect]
     Active Substance: ADALIMUMAB
     Route: 058
     Dates: start: 20171105

REACTIONS (15)
  - Ligament rupture [Recovering/Resolving]
  - Gastrooesophageal reflux disease [Unknown]
  - Oropharyngeal pain [Recovered/Resolved]
  - Post procedural cellulitis [Recovering/Resolving]
  - Pulmonary hypertension [Recovered/Resolved]
  - Synovial cyst [Unknown]
  - Meniscal degeneration [Not Recovered/Not Resolved]
  - Pulmonary hypertension [Not Recovered/Not Resolved]
  - Choking sensation [Recovered/Resolved]
  - Neck mass [Not Recovered/Not Resolved]
  - Pain in extremity [Not Recovered/Not Resolved]
  - Meniscus injury [Recovering/Resolving]
  - Mitral valve incompetence [Not Recovered/Not Resolved]
  - Weight increased [Unknown]
  - Iron deficiency [Unknown]

NARRATIVE: CASE EVENT DATE: 2014
